FAERS Safety Report 18776990 (Version 1)
Quarter: 2021Q1

REPORT INFORMATION
  Report Type: Spontaneous
  Country: DE (occurrence: TR)
  Receive Date: 20210122
  Receipt Date: 20210122
  Transmission Date: 20210419
  Serious: Yes (Other)
  Sender: FDA-Public Use
  Company Number: TR-ELI_LILLY_AND_COMPANY-TR202101008965

PATIENT
  Age: 57 Year
  Sex: Male

DRUGS (3)
  1. 5?FLUOROURACIL [FLUOROURACIL] [Concomitant]
     Active Substance: FLUOROURACIL
     Indication: OROPHARYNGEAL SQUAMOUS CELL CARCINOMA
     Dosage: UNK, ONCE IN TWO  WEEKS
     Route: 065
  2. CISPLATIN. [Concomitant]
     Active Substance: CISPLATIN
     Indication: OROPHARYNGEAL SQUAMOUS CELL CARCINOMA
     Dosage: UNK, ONCE IN TWO  WEEKS
  3. ERBITUX [Suspect]
     Active Substance: CETUXIMAB
     Indication: OROPHARYNGEAL SQUAMOUS CELL CARCINOMA
     Dosage: UNK UNK, ONCE IN TWO WEEKS
     Route: 065

REACTIONS (5)
  - Hypotension [Unknown]
  - Tachycardia [Unknown]
  - General physical health deterioration [Unknown]
  - Off label use [Unknown]
  - Altered state of consciousness [Unknown]
